FAERS Safety Report 4921029-0 (Version None)
Quarter: 2006Q1

REPORT INFORMATION
  Report Type: 
  Country: None (occurrence: None)
  Receive Date: 20060223
  Receipt Date: 20060214
  Transmission Date: 20060701
  Serious: Yes (Life-Threatening, Hospitalization, Disabling)
  Sender: FDA-Public Use
  Company Number: US-MERCK-0602USA04269

PATIENT
  Sex: Male
  Weight: 43 kg

DRUGS (2)
  1. CRIXIVAN [Suspect]
     Indication: HIV INFECTION
     Route: 048
  2. RITONAVIR [Concomitant]
     Route: 065

REACTIONS (1)
  - RENAL FAILURE [None]
